FAERS Safety Report 6290701-5 (Version None)
Quarter: 2009Q3

REPORT INFORMATION
  Report Type: 
  Country: None (occurrence: None)
  Receive Date: 20090727
  Receipt Date: 20081218
  Transmission Date: 20100115
  Serious: Yes (Other)
  Sender: FDA-Public Use
  Company Number: OMPQ-PR-0812S-1140

PATIENT
  Sex: Male

DRUGS (1)
  1. OMNIPAQUE 300 [Suspect]
     Indication: HAEMATURIA
     Dosage: SINGLE DOSE, IV
     Route: 042
     Dates: start: 20081217, end: 20081217

REACTIONS (1)
  - ANAPHYLACTOID REACTION [None]
